FAERS Safety Report 16188551 (Version 3)
Quarter: 2019Q2

REPORT INFORMATION
  Report Type: Spontaneous
  Country: JP (occurrence: JP)
  Receive Date: 20190412
  Receipt Date: 20190611
  Transmission Date: 20190711
  Serious: Yes (Death, Hospitalization)
  Sender: FDA-Public Use
  Company Number: PHJP2019JP004240

PATIENT
  Age: 54 Year
  Sex: Male
  Weight: 65 kg

DRUGS (5)
  1. METYRAPONE [Concomitant]
     Active Substance: METYRAPONE
     Indication: PANCREATIC NEUROENDOCRINE TUMOUR METASTATIC
     Dosage: UNK
     Route: 065
  2. LANREOTIDE ACETATE [Concomitant]
     Active Substance: LANREOTIDE ACETATE
     Indication: PANCREATIC NEUROENDOCRINE TUMOUR METASTATIC
     Dosage: UNK
     Route: 065
  3. POTASSIUM CHLORIDE. [Concomitant]
     Active Substance: POTASSIUM CHLORIDE
     Indication: PROPHYLAXIS
     Dosage: UNK
     Route: 065
  4. BAKTAR [Concomitant]
     Active Substance: SULFAMETHOXAZOLE\TRIMETHOPRIM
     Indication: PROPHYLAXIS
     Dosage: UNK
     Route: 065
  5. AFINITOR [Suspect]
     Active Substance: EVEROLIMUS
     Indication: PANCREATIC NEUROENDOCRINE TUMOUR METASTATIC
     Dosage: 10 MG, QD
     Route: 048
     Dates: start: 2018

REACTIONS (12)
  - Pancreatic neuroendocrine tumour metastatic [Fatal]
  - Malignant neoplasm progression [Fatal]
  - Hepatic failure [Unknown]
  - Metastases to liver [Fatal]
  - Metastases to bone marrow [Fatal]
  - Fatigue [Unknown]
  - Metastases to spleen [Fatal]
  - Ascites [Unknown]
  - Liver disorder [Unknown]
  - Metastases to lung [Fatal]
  - Metastases to adrenals [Fatal]
  - Asthenia [Unknown]

NARRATIVE: CASE EVENT DATE: 201804
